FAERS Safety Report 22791746 (Version 3)
Quarter: 2025Q1

REPORT INFORMATION
  Report Type: Spontaneous
  Country: US (occurrence: US)
  Receive Date: 20230807
  Receipt Date: 20250123
  Transmission Date: 20250408
  Serious: No
  Sender: CHATTEM
  Company Number: US-OPELLA-2023OHG001930

PATIENT

DRUGS (1)
  1. UNISOM SLEEPTABS [Suspect]
     Active Substance: DOXYLAMINE SUCCINATE
     Indication: Product used for unknown indication
     Route: 065

REACTIONS (1)
  - Somnolence [Unknown]
